FAERS Safety Report 14473819 (Version 4)
Quarter: 2018Q3

REPORT INFORMATION
  Report Type: Spontaneous
  Country: US (occurrence: US)
  Receive Date: 20180201
  Receipt Date: 20180822
  Transmission Date: 20181010
  Serious: Yes (Hospitalization, Other)
  Sender: FDA-Public Use
  Company Number: US-PFIZER INC-2018042039

PATIENT
  Age: 59 Year
  Sex: Female
  Weight: 69.98 kg

DRUGS (2)
  1. IBRANCE [Suspect]
     Active Substance: PALBOCICLIB
     Indication: BREAST CANCER METASTATIC
     Dosage: 125 MG, CYCLIC (D 1?21 Q28 DAYS)
     Route: 048
     Dates: start: 20160901
  2. IBRANCE [Suspect]
     Active Substance: PALBOCICLIB
     Dosage: 100 MG, CYCLIC (D 1?21Q28 DAYS)
     Route: 048
     Dates: start: 20160901, end: 201808

REACTIONS (11)
  - Decreased appetite [Unknown]
  - Neoplasm progression [Unknown]
  - Nausea [Recovering/Resolving]
  - Neuropathy peripheral [Unknown]
  - White blood cell count decreased [Unknown]
  - Fatigue [Not Recovered/Not Resolved]
  - Neutrophil count decreased [Unknown]
  - Alopecia [Unknown]
  - Salivary hypersecretion [Unknown]
  - Vomiting [Unknown]
  - Obstruction [Unknown]
